FAERS Safety Report 9227840 (Version 1)
Quarter: 2013Q2

REPORT INFORMATION
  Report Type: Spontaneous
  Country: US (occurrence: US)
  Receive Date: 20130412
  Receipt Date: 20130412
  Transmission Date: 20140414
  Serious: No
  Sender: FDA-Public Use
  Company Number: US-MYLANLABS-2012S1005440

PATIENT
  Sex: Female

DRUGS (2)
  1. TOPIRAMATE TABLETS [Suspect]
     Indication: MIGRAINE
     Route: 048
     Dates: start: 2009
  2. TOPIRAMATE TABLETS [Suspect]
     Indication: MIGRAINE
     Route: 048
     Dates: start: 2009

REACTIONS (2)
  - Alopecia [Not Recovered/Not Resolved]
  - Hair texture abnormal [Not Recovered/Not Resolved]
